FAERS Safety Report 7038115-4 (Version None)
Quarter: 2010Q4

REPORT INFORMATION
  Report Type: 
  Country: None (occurrence: None)
  Receive Date: 20101011
  Receipt Date: 20100928
  Transmission Date: 20110411
  Serious: Yes (Congenital Anomaly)
  Sender: FDA-Public Use
  Company Number: GB-WATSON-2010-13293

PATIENT

DRUGS (2)
  1. SERTRALINE HYDROCHLORIDE [Suspect]
     Indication: PSYCHOTIC DISORDER
     Dosage: 50 MG, TID
     Route: 064
  2. FERROUS FUMARATE [Concomitant]
     Indication: ANAEMIA
     Dosage: 210 MG, BID
     Route: 064

REACTIONS (1)
  - CONGENITAL HYPOTHYROIDISM [None]
